FAERS Safety Report 8086239-5 (Version None)
Quarter: 2012Q1

REPORT INFORMATION
  Report Type: 
  Country: None (occurrence: None)
  Receive Date: 20120128
  Receipt Date: 20110425
  Transmission Date: 20120608
  Serious: No
  Sender: FDA-Public Use
  Company Number: US-ABBOTT-11P-163-0719736-00

PATIENT
  Sex: Male

DRUGS (3)
  1. HUMIRA [Suspect]
     Indication: PSORIASIS
     Dates: start: 20110201
  2. DEXAMETHASONE [Concomitant]
     Indication: PSORIASIS
     Route: 061
     Dates: start: 20110201
  3. DEXAMETHASONE [Concomitant]
     Dosage: PSORIASIS HAS ^CLEARED UP^ SINCE STARTED HUMIRA AND CREAM
     Route: 061

REACTIONS (4)
  - WRONG TECHNIQUE IN DRUG USAGE PROCESS [None]
  - INJECTION SITE PAIN [None]
  - INCORRECT ROUTE OF DRUG ADMINISTRATION [None]
  - INJECTION SITE HAEMORRHAGE [None]
